FAERS Safety Report 20893015 (Version 1)
Quarter: 2022Q2

REPORT INFORMATION
  Report Type: Spontaneous
  Country: CH (occurrence: CH)
  Receive Date: 20220531
  Receipt Date: 20220531
  Transmission Date: 20220721
  Serious: Yes (Other)
  Sender: FDA-Public Use
  Company Number: None

PATIENT
  Age: 56 Year
  Sex: Male

DRUGS (16)
  1. CEFAZOLIN [Suspect]
     Active Substance: CEFAZOLIN
     Dosage: UNIT DOSE: 2 GM, FREQUENCY TIME 1 DAY, DURATION : 10 DAY
     Route: 041
     Dates: start: 20210101, end: 20210111
  2. PREGABALIN [Suspect]
     Active Substance: PREGABALIN
     Dosage: UNIT DOSE: 25 MG, FREQUENCY TIME : 2 DAY, DURATION : 3 DAYS
     Route: 048
     Dates: start: 20201230, end: 20210102
  3. PREGABALIN [Suspect]
     Active Substance: PREGABALIN
     Dosage: UNIT DOSE: 50 MG, FREQUENCY TIME : 2 DAY
     Route: 048
     Dates: start: 20210105, end: 20210105
  4. PREGABALIN [Suspect]
     Active Substance: PREGABALIN
     Dosage: UNIT DOSE: 75 MG,  FREQUENCY TIME : 2 DAY
     Route: 048
     Dates: start: 20210111
  5. HEPARIN [Suspect]
     Active Substance: HEPARIN SODIUM
     Dosage: DURATION : 13 DAYS
     Dates: start: 20201223, end: 20210105
  6. IBUPROFEN [Suspect]
     Active Substance: IBUPROFEN
     Dosage: UNIT DOSE: 600 MG, FREQUENCY TIME : 3 DAYS, DURATION : 7 DAYS
     Route: 048
     Dates: start: 20210105, end: 20210112
  7. CRESTOR [Suspect]
     Active Substance: ROSUVASTATIN CALCIUM
     Dosage: UNIT DOSE: 10 MG , FREQUENCY TIME : 1 DAY
     Route: 048
     Dates: start: 20201229
  8. TEGRETOL [Suspect]
     Active Substance: CARBAMAZEPINE
     Dosage: UNIT DOSE: 400 MG, FREQUENCY TIME : 2 DAYS
     Route: 048
     Dates: start: 2017
  9. DAFALGAN [Suspect]
     Active Substance: ACETAMINOPHEN
     Dosage: UNIT DOSE: 1000 MG, FREQUENCY TIME : 4 DAY, DURATION 4 YEARS
     Route: 048
     Dates: start: 2017, end: 20210114
  10. ASPIRIN [Concomitant]
     Active Substance: ASPIRIN
  11. CYMBALTA [Concomitant]
     Active Substance: DULOXETINE HYDROCHLORIDE
  12. PANTOZOL [Concomitant]
     Active Substance: PANTOPRAZOLE SODIUM
  13. TORSEMIDE [Concomitant]
     Active Substance: TORSEMIDE
  14. MORPHINE [Concomitant]
     Active Substance: MORPHINE
  15. NICOMORPHINE HYDROCHLORIDE [Concomitant]
     Active Substance: NICOMORPHINE HYDROCHLORIDE
  16. ENOXAPARIN SODIUM [Concomitant]
     Active Substance: ENOXAPARIN SODIUM
     Dosage: FREQUENCY TIME : 1 DAY
     Route: 058
     Dates: start: 20210111

REACTIONS (2)
  - Liver function test increased [Recovered/Resolved]
  - Liver function test increased [Recovering/Resolving]

NARRATIVE: CASE EVENT DATE: 20201229
